FAERS Safety Report 7038568-1 (Version None)
Quarter: 2010Q4

REPORT INFORMATION
  Report Type: 
  Country: None (occurrence: None)
  Receive Date: 20101011
  Receipt Date: 20100929
  Transmission Date: 20110411
  Serious: Yes (Other)
  Sender: FDA-Public Use
  Company Number: DE-PFIZER INC-2010124010

PATIENT
  Sex: Female

DRUGS (1)
  1. REVATIO [Suspect]
     Indication: RIGHT VENTRICULAR FAILURE
     Dosage: 20 MG, 3X/DAY
     Route: 048
     Dates: start: 20060101

REACTIONS (4)
  - ABDOMINAL DISCOMFORT [None]
  - ABDOMINAL DISTENSION [None]
  - DRY MOUTH [None]
  - HYPERHIDROSIS [None]
